FAERS Safety Report 7279366-3 (Version None)
Quarter: 2011Q1

REPORT INFORMATION
  Report Type: 
  Country: None (occurrence: None)
  Receive Date: 20110208
  Receipt Date: 20110203
  Transmission Date: 20110831
  Serious: Yes (Life-Threatening, Hospitalization, Other)
  Sender: FDA-Public Use
  Company Number: US-SP-2010-05903

PATIENT
  Sex: Female

DRUGS (6)
  1. VARICELLA [Suspect]
     Indication: IMMUNISATION
     Route: 058
     Dates: start: 20101011, end: 20101011
  2. FLUZONE [Suspect]
     Indication: IMMUNISATION
     Route: 030
     Dates: start: 20101011, end: 20101011
  3. HEP B [Suspect]
     Indication: IMMUNISATION
     Route: 065
     Dates: start: 20101011, end: 20101011
  4. AVIANE-28 [Concomitant]
  5. TUBERSOL [Suspect]
     Indication: TUBERCULIN TEST
     Route: 023
     Dates: start: 20101011, end: 20101011
  6. EFFEXOR [Concomitant]

REACTIONS (8)
  - VACCINATION SITE INFLAMMATION [None]
  - DYSPNOEA [None]
  - PAIN [None]
  - OROPHARYNGEAL PAIN [None]
  - COUGH [None]
  - HYPERSENSITIVITY [None]
  - PALPITATIONS [None]
  - PYREXIA [None]
